FAERS Safety Report 23759979 (Version 1)
Quarter: 2024Q2

REPORT INFORMATION
  Report Type: Report from Study
  Country: BR (occurrence: BR)
  Receive Date: 20240419
  Receipt Date: 20240419
  Transmission Date: 20240716
  Serious: Yes (Hospitalization)
  Sender: FDA-Public Use
  Company Number: BR-JNJFOC-20240438746

PATIENT
  Age: 11 Year
  Sex: Female
  Weight: 21 kg

DRUGS (1)
  1. INFLIXIMAB [Suspect]
     Active Substance: INFLIXIMAB
     Indication: Crohn^s disease
     Route: 041
     Dates: start: 20240315

REACTIONS (2)
  - Abdominal pain [Recovering/Resolving]
  - Weight decreased [Recovering/Resolving]
